FAERS Safety Report 7951132-2 (Version None)
Quarter: 2011Q4

REPORT INFORMATION
  Report Type: 
  Country: None (occurrence: None)
  Receive Date: 20111123
  Receipt Date: 20111114
  Transmission Date: 20120403
  Serious: Yes (Hospitalization, Disabling, Other)
  Sender: FDA-Public Use
  Company Number: 2011SP035872

PATIENT
  Age: 42 Year
  Sex: Female
  Weight: 95.2554 kg

DRUGS (5)
  1. PROPRANOLOL [Concomitant]
  2. NUVARING [Suspect]
     Indication: MENORRHAGIA
     Dates: start: 20060729, end: 20080821
  3. NUVARING [Suspect]
     Indication: CONTRACEPTION
     Dates: start: 20060729, end: 20080821
  4. NUVARING [Suspect]
     Indication: MUSCLE SPASMS
     Dates: start: 20060729, end: 20080821
  5. MAXALT [Concomitant]

REACTIONS (6)
  - EXOSTOSIS [None]
  - FOOT FRACTURE [None]
  - NERVE INJURY [None]
  - RENAL STONE REMOVAL [None]
  - THROMBOSIS [None]
  - PERIPHERAL EMBOLISM [None]
